FAERS Safety Report 10344947 (Version 1)
Quarter: 2014Q3

REPORT INFORMATION
  Report Type: Spontaneous
  Country: US (occurrence: None)
  Receive Date: 20140725
  Receipt Date: 20140725
  Transmission Date: 20150326
  Serious: No
  Sender: FDA-Public Use
  Company Number: None

PATIENT
  Age: 80 Year
  Sex: Female
  Weight: 65.3 kg

DRUGS (2)
  1. CARBOPLATIN. [Suspect]
     Active Substance: CARBOPLATIN
  2. TAXOL [Suspect]
     Active Substance: PACLITAXEL

REACTIONS (6)
  - Chills [None]
  - Respiratory rate increased [None]
  - Body temperature increased [None]
  - Contusion [None]
  - Tremor [None]
  - Fall [None]

NARRATIVE: CASE EVENT DATE: 20140716
